FAERS Safety Report 8300623-3 (Version None)
Quarter: 2012Q2

REPORT INFORMATION
  Report Type: 
  Country: None (occurrence: None)
  Receive Date: 20120420
  Receipt Date: 20120410
  Transmission Date: 20120825
  Serious: Yes (Other)
  Sender: FDA-Public Use
  Company Number: PHHY2012KR000598

PATIENT
  Sex: Female

DRUGS (2)
  1. EXJADE [Suspect]
     Indication: APLASTIC ANAEMIA
     Dosage: 500 MG, DAILY
     Route: 048
     Dates: start: 20080627
  2. HORMONES NOS [Concomitant]
     Dosage: UNK UKN, UNK

REACTIONS (2)
  - PAIN [None]
  - GENERAL PHYSICAL HEALTH DETERIORATION [None]
